FAERS Safety Report 8337255-7 (Version None)
Quarter: 2012Q2

REPORT INFORMATION
  Report Type: 
  Country: None (occurrence: None)
  Receive Date: 20120502
  Receipt Date: 20120426
  Transmission Date: 20120825
  Serious: Yes (Other)
  Sender: FDA-Public Use
  Company Number: DSA_55830_2012

PATIENT
  Age: 63 Year
  Sex: Female

DRUGS (1)
  1. XENAZINE [Suspect]
     Indication: DYSKINESIA
     Dosage: (37.5 MG, 37.5 MG DAILY ORAL)
     Route: 048
     Dates: start: 20110601

REACTIONS (5)
  - DYSPNOEA [None]
  - RESTLESSNESS [None]
  - ORAL MUCOSAL BLISTERING [None]
  - SWOLLEN TONGUE [None]
  - INSOMNIA [None]
